FAERS Safety Report 6818785-3 (Version None)
Quarter: 2010Q3

REPORT INFORMATION
  Report Type: 
  Country: None (occurrence: None)
  Receive Date: 20100706
  Receipt Date: 20100622
  Transmission Date: 20110219
  Serious: Yes (Death)
  Sender: FDA-Public Use
  Company Number: -MYLANLABS-2010S1011087

PATIENT
  Age: 6 Decade
  Sex: Female

DRUGS (7)
  1. TRASTUZUMAB [Suspect]
     Indication: ADJUVANT THERAPY
     Route: 065
     Dates: start: 20081001, end: 20090309
  2. TIANEPTINE [Suspect]
     Indication: DEPRESSION
     Route: 065
  3. DIAZEPAM [Suspect]
     Indication: DEPRESSION
     Route: 065
  4. ESTAZOLAM [Suspect]
     Indication: DEPRESSION
     Route: 065
  5. ATENOLOL [Concomitant]
     Indication: SUPRAVENTRICULAR EXTRASYSTOLES
     Route: 065
  6. PERINDOPRIL [Concomitant]
     Dosage: 5 MG/DAY
     Route: 065
  7. TAMOXIFEN CITRATE [Concomitant]
     Route: 065
     Dates: start: 20080901

REACTIONS (2)
  - LEFT VENTRICULAR DYSFUNCTION [None]
  - SUDDEN DEATH [None]
